FAERS Safety Report 7526584-2 (Version None)
Quarter: 2011Q2

REPORT INFORMATION
  Report Type: 
  Country: None (occurrence: None)
  Receive Date: 20110606
  Receipt Date: 20110531
  Transmission Date: 20111010
  Serious: Yes (Death, Life-Threatening, Hospitalization, Disabling, Other)
  Sender: FDA-Public Use
  Company Number: IT-CELGENEUS-083-21880-09122140

PATIENT
  Sex: Male

DRUGS (8)
  1. PREDNISONE [Concomitant]
     Route: 048
     Dates: start: 20080901
  2. PLATELETS [Concomitant]
     Route: 065
  3. RED BLOOD CELLS [Concomitant]
     Route: 065
  4. BACTRIM [Concomitant]
     Route: 065
  5. REVLIMID [Suspect]
     Dosage: 10 MILLIGRAM
     Route: 048
     Dates: start: 20090102, end: 20090526
  6. PREDNISONE [Concomitant]
     Route: 065
  7. EPREX [Concomitant]
     Route: 065
  8. REVLIMID [Suspect]
     Indication: MULTIPLE MYELOMA
     Dosage: 25 MILLIGRAM
     Route: 048
     Dates: start: 20080901

REACTIONS (4)
  - COLORECTAL CANCER [None]
  - TOXIC SKIN ERUPTION [None]
  - MULTIPLE MYELOMA [None]
  - BONE MARROW TOXICITY [None]
